FAERS Safety Report 9213175 (Version 1)
Quarter: 2013Q2

REPORT INFORMATION
  Report Type: Spontaneous
  Country: US (occurrence: US)
  Receive Date: 20130405
  Receipt Date: 20130405
  Transmission Date: 20140414
  Serious: No
  Sender: FDA-Public Use
  Company Number: US-JNJFOC-20130316493

PATIENT
  Age: 40 Year
  Sex: Female

DRUGS (5)
  1. DURAGESIC [Suspect]
     Indication: PAIN
     Route: 062
     Dates: start: 20130211
  2. DURAGESIC [Suspect]
     Indication: PAIN
     Route: 062
     Dates: start: 2012, end: 20130210
  3. PROZAC [Concomitant]
     Indication: PRODUCT USED FOR UNKNOWN INDICATION
     Route: 048
  4. PERCOCET [Concomitant]
     Indication: PRODUCT USED FOR UNKNOWN INDICATION
     Route: 048
  5. AMBIEN [Concomitant]
     Indication: PRODUCT USED FOR UNKNOWN INDICATION
     Route: 048

REACTIONS (5)
  - Drug administered at inappropriate site [Not Recovered/Not Resolved]
  - Drug ineffective [Recovered/Resolved]
  - Anxiety [Not Recovered/Not Resolved]
  - Product quality issue [Unknown]
  - Palpitations [Not Recovered/Not Resolved]
